FAERS Safety Report 5868928-3 (Version None)
Quarter: 2008Q3

REPORT INFORMATION
  Report Type: 
  Country: None (occurrence: None)
  Receive Date: 20080903
  Receipt Date: 20080822
  Transmission Date: 20090109
  Serious: Yes (Death)
  Sender: FDA-Public Use
  Company Number: GB-MERCK-0808GBR00106

PATIENT
  Age: 52 Year
  Sex: Female

DRUGS (6)
  1. DECADRON SRC [Suspect]
     Indication: LYMPHOMA
     Route: 048
  2. CYCLOPHOSPHAMIDE [Concomitant]
     Route: 065
  3. FLUDARABINE PHOSPHATE [Concomitant]
     Route: 065
  4. PREDNISOLONE [Concomitant]
     Route: 065
  5. CYTARABINE [Concomitant]
     Route: 065
  6. CISPLATIN [Concomitant]
     Route: 065

REACTIONS (1)
  - DEATH [None]
